FAERS Safety Report 17193679 (Version 2)
Quarter: 2022Q1

REPORT INFORMATION
  Report Type: Report from Study
  Country: US (occurrence: US)
  Receive Date: 20191223
  Receipt Date: 20220107
  Transmission Date: 20220424
  Serious: Yes (Other)
  Sender: FDA-Public Use
  Company Number: US-JNJFOC-20191229195

PATIENT
  Age: 32 Year
  Sex: Male

DRUGS (9)
  1. SPRAVATO [Suspect]
     Active Substance: ESKETAMINE
     Indication: Depression
     Dates: start: 201710, end: 20191210
  2. CYMBALTA [Suspect]
     Active Substance: DULOXETINE HYDROCHLORIDE
     Indication: Depression
     Route: 048
     Dates: start: 20191210
  3. CYMBALTA [Suspect]
     Active Substance: DULOXETINE HYDROCHLORIDE
     Route: 048
  4. CYMBALTA [Suspect]
     Active Substance: DULOXETINE HYDROCHLORIDE
     Route: 048
  5. EFFEXOR [Concomitant]
     Active Substance: VENLAFAXINE HYDROCHLORIDE
     Indication: Hypertension
     Route: 065
     Dates: start: 20190916, end: 20191210
  6. WELLBUTRIN [Concomitant]
     Active Substance: BUPROPION HYDROCHLORIDE
     Route: 065
     Dates: start: 20190819
  7. LEXAPRO [Concomitant]
     Active Substance: ESCITALOPRAM OXALATE
     Indication: Headache
     Route: 065
     Dates: start: 20190819, end: 20190916
  8. HYDROXYZINE [Concomitant]
     Active Substance: HYDROXYZINE HYDROCHLORIDE
     Indication: Product used for unknown indication
     Dosage: PRN
     Route: 065
  9. FLUVOXAMINE [Concomitant]
     Active Substance: FLUVOXAMINE
     Indication: Product used for unknown indication
     Route: 065
     Dates: start: 201902

REACTIONS (2)
  - Hypertension [Recovered/Resolved]
  - Sedation [Recovered/Resolved]

NARRATIVE: CASE EVENT DATE: 20191210
